FAERS Safety Report 20819904 (Version 2)
Quarter: 2022Q2

REPORT INFORMATION
  Report Type: Report from Study
  Country: AU (occurrence: AU)
  Receive Date: 20220512
  Receipt Date: 20220513
  Transmission Date: 20220721
  Serious: Yes (Hospitalization)
  Sender: FDA-Public Use
  Company Number: AU-PFIZER INC-202200661727

PATIENT
  Age: 65 Year
  Sex: Male
  Weight: 79.2 kg

DRUGS (4)
  1. SASANLIMAB [Suspect]
     Active Substance: SASANLIMAB
     Indication: Non-small cell lung cancer
     Dosage: 300 MG, EVERY 3 WEEKS
     Route: 058
     Dates: start: 20220303, end: 20220428
  2. ENCORAFENIB [Suspect]
     Active Substance: ENCORAFENIB
     Indication: Non-small cell lung cancer
     Dosage: 450 MG, 1X/DAY
     Route: 048
     Dates: start: 20220303, end: 20220503
  3. BINIMETINIB [Suspect]
     Active Substance: BINIMETINIB
     Indication: Non-small cell lung cancer
     Dosage: 45 MG, 2X/DAY (BID)
     Route: 048
     Dates: start: 20220303, end: 20220426
  4. PANADOL [Concomitant]
     Active Substance: ACETAMINOPHEN
     Indication: Pain
     Dosage: 1 G, AS NEEDED
     Route: 048
     Dates: start: 20220502

REACTIONS (1)
  - Chest pain [Recovered/Resolved]

NARRATIVE: CASE EVENT DATE: 20220503
